FAERS Safety Report 6655471-7 (Version None)
Quarter: 2010Q1

REPORT INFORMATION
  Report Type: 
  Country: None (occurrence: None)
  Receive Date: 20100329
  Receipt Date: 20100316
  Transmission Date: 20100710
  Serious: No
  Sender: FDA-Public Use
  Company Number: US-B.I. PHARMACEUTICALS,INC./RIDGEFIELD-2010-BP-03104BP

PATIENT
  Sex: Female

DRUGS (3)
  1. ZANTAC 75 [Suspect]
     Indication: DYSPEPSIA
     Dosage: 150 MG
     Route: 048
     Dates: start: 20100315, end: 20100315
  2. BENADRYL [Concomitant]
     Indication: SEASONAL ALLERGY
     Route: 048
  3. NYQUIL [Concomitant]

REACTIONS (1)
  - SENSATION OF FOREIGN BODY [None]
